APPROVED DRUG PRODUCT: CHROMITOPE SODIUM
Active Ingredient: SODIUM CHROMATE CR-51
Strength: 2mCi/VIAL
Dosage Form/Route: INJECTABLE;INJECTION
Application: N013993 | Product #002
Applicant: BRACCO DIAGNOSTICS INC
Approved: Approved Prior to Jan 1, 1982 | RLD: No | RS: No | Type: DISCN